FAERS Safety Report 4714715-9 (Version None)
Quarter: 2005Q3

REPORT INFORMATION
  Report Type: 
  Country: None (occurrence: None)
  Receive Date: 20050713
  Receipt Date: 20050630
  Transmission Date: 20060218
  Serious: Yes (Other)
  Sender: FDA-Public Use
  Company Number: 2005096075

PATIENT
  Sex: Female
  Weight: 95.709 kg

DRUGS (4)
  1. CELEBREX [Suspect]
     Indication: RHEUMATOID ARTHRITIS
     Dosage: 100 MG (100 MG, 1 IN 1 D), ORAL
     Route: 048
  2. SYNTHROID [Concomitant]
  3. PHENOBARBITAL TAB [Concomitant]
  4. PRILOSEC [Concomitant]

REACTIONS (3)
  - EXOSTOSIS [None]
  - LIMB DISCOMFORT [None]
  - SHOULDER PAIN [None]
